FAERS Safety Report 19603927 (Version 8)
Quarter: 2021Q4

REPORT INFORMATION
  Report Type: Report from Study
  Country: KR (occurrence: KR)
  Receive Date: 20210723
  Receipt Date: 20211025
  Transmission Date: 20220303
  Serious: Yes (Hospitalization)
  Sender: FDA-Public Use
  Company Number: KR-EISAI MEDICAL RESEARCH-EC-2021-096699

PATIENT
  Age: 6 Year
  Sex: Female
  Weight: 19.45 kg

DRUGS (8)
  1. LENVATINIB [Suspect]
     Active Substance: LENVATINIB
     Indication: Angiosarcoma
     Dosage: FLUCTUATED DOSE, FORMULATION REPORTED AS ^SUSPENSION^.
     Route: 048
     Dates: start: 20210120
  2. PROPRANOLOL HYDROCHLORIDE [Concomitant]
     Active Substance: PROPRANOLOL HYDROCHLORIDE
     Dates: start: 20201221
  3. URSODIOL [Concomitant]
     Active Substance: URSODIOL
     Dates: start: 20201221
  4. GASTER [Concomitant]
     Active Substance: FAMOTIDINE
     Dates: start: 20201231
  5. PREDNISOLONE [Concomitant]
     Active Substance: PREDNISOLONE
     Dates: start: 20210103
  6. SYNTHROID [Concomitant]
     Active Substance: LEVOTHYROXINE SODIUM
     Dates: start: 20210514, end: 20210707
  7. SYNTHROID [Concomitant]
     Active Substance: LEVOTHYROXINE SODIUM
     Dates: start: 20210708
  8. NORVASC [Concomitant]
     Active Substance: AMLODIPINE BESYLATE
     Dates: start: 20210707, end: 20210719

REACTIONS (1)
  - Ileus [Recovered/Resolved]

NARRATIVE: CASE EVENT DATE: 20210717
